FAERS Safety Report 7543964-X (Version None)
Quarter: 2011Q2

REPORT INFORMATION
  Report Type: 
  Country: None (occurrence: None)
  Receive Date: 20110613
  Receipt Date: 20050222
  Transmission Date: 20111010
  Serious: Yes (Life-Threatening, Hospitalization, Other)
  Sender: FDA-Public Use
  Company Number: PHFR2005GB00475

PATIENT
  Sex: Female

DRUGS (5)
  1. ADCAL-D3 [Concomitant]
  2. FUROSEMIDE [Concomitant]
  3. AUGMENTIN [Concomitant]
  4. ASPIRIN [Concomitant]
  5. CLOZAPINE [Suspect]
     Indication: SCHIZOPHRENIA

REACTIONS (10)
  - DECUBITUS ULCER [None]
  - CONFUSIONAL STATE [None]
  - WHITE BLOOD CELL COUNT INCREASED [None]
  - CARDIAC DISORDER [None]
  - NEUTROPHIL COUNT INCREASED [None]
  - URINARY TRACT INFECTION [None]
  - VASCULAR DEMENTIA [None]
  - DECREASED APPETITE [None]
  - FALL [None]
  - WEIGHT DECREASED [None]
